FAERS Safety Report 7321494-8 (Version None)
Quarter: 2011Q1

REPORT INFORMATION
  Report Type: 
  Country: None (occurrence: None)
  Receive Date: 20110228
  Receipt Date: 20100610
  Transmission Date: 20110831
  Serious: Yes (Other)
  Sender: FDA-Public Use
  Company Number: US-PFIZER INC-2010073500

PATIENT

DRUGS (2)
  1. ATIVAN [Suspect]
  2. GEODON [Suspect]

REACTIONS (2)
  - AKATHISIA [None]
  - AGITATION [None]
